FAERS Safety Report 4445041-3 (Version None)
Quarter: 2004Q3

REPORT INFORMATION
  Report Type: 
  Country: None (occurrence: None)
  Receive Date: 20040907
  Receipt Date: 20040824
  Transmission Date: 20050211
  Serious: Yes (Death, Hospitalization, Other)
  Sender: FDA-Public Use
  Company Number: 2004230320GB

PATIENT
  Sex: Female

DRUGS (1)
  1. IDARUBICIN HCL [Suspect]
     Indication: MULTIPLE MYELOMA
     Dosage: 10 MG, ORAL
     Route: 048

REACTIONS (3)
  - DIARRHOEA [None]
  - OVERDOSE [None]
  - SEPSIS [None]
